FAERS Safety Report 9602396 (Version 2)
Quarter: 2014Q1

REPORT INFORMATION
  Report Type: Spontaneous
  Country: US (occurrence: US)
  Receive Date: 20131007
  Receipt Date: 20140228
  Transmission Date: 20141002
  Serious: Yes (Other)
  Sender: FDA-Public Use
  Company Number: US-GLAXOSMITHKLINE-A1040530A

PATIENT
  Age: 57 Year
  Sex: Female

DRUGS (13)
  1. BENLYSTA [Suspect]
     Indication: SYSTEMIC LUPUS ERYTHEMATOSUS
     Dosage: 600MG UNKNOWN
     Route: 042
     Dates: start: 20130904
  2. CARISOPRODOL [Concomitant]
  3. PHENOBARBITAL [Concomitant]
  4. LIPITOR [Concomitant]
  5. LEVOTHYROXINE [Concomitant]
  6. HYDROCHLOROTHIAZIDE + LOSARTAN [Concomitant]
  7. XARELTO [Concomitant]
  8. ALPRAZOLAM [Concomitant]
  9. LEFLUNOMIDE [Concomitant]
  10. LEXAPRO [Concomitant]
  11. PLAQUENIL [Concomitant]
  12. PREDNISONE [Concomitant]
  13. NAPROXEN [Concomitant]

REACTIONS (7)
  - Dyspnoea [Recovered/Resolved]
  - Cough [Recovered/Resolved]
  - Throat irritation [Recovered/Resolved]
  - Oropharyngeal pain [Recovered/Resolved]
  - Pruritus [Recovered/Resolved]
  - Malaise [Recovered/Resolved]
  - Bronchospasm [Unknown]
